FAERS Safety Report 7801348-0 (Version None)
Quarter: 2011Q4

REPORT INFORMATION
  Report Type: 
  Country: None (occurrence: None)
  Receive Date: 20111007
  Receipt Date: 20111004
  Transmission Date: 20120403
  Serious: No
  Sender: FDA-Public Use
  Company Number: US-PFIZER INC-2011128949

PATIENT
  Sex: Female
  Weight: 50.34 kg

DRUGS (1)
  1. IBUPROFEN (ADVIL) [Suspect]
     Indication: ARTHRITIS
     Dosage: 400 MG, DAILY
     Route: 048
     Dates: start: 20110608, end: 20110611

REACTIONS (3)
  - PAIN [None]
  - ARTHRITIS [None]
  - DRUG INEFFECTIVE [None]
